FAERS Safety Report 18793243 (Version 1)
Quarter: 2021Q1

REPORT INFORMATION
  Report Type: Spontaneous
  Country: US (occurrence: US)
  Receive Date: 20210127
  Receipt Date: 20210127
  Transmission Date: 20210419
  Serious: Yes (Other)
  Sender: FDA-Public Use
  Company Number: US-GLAXOSMITHKLINE-US2021GSK018726

PATIENT
  Sex: Male

DRUGS (4)
  1. ZANTAC [Suspect]
     Active Substance: RANITIDINE HYDROCHLORIDE
     Indication: DRY MOUTH
     Dosage: UNKNOWN AT THIS TIME PRESCRIPTION
     Route: 065
  2. RANITIDINE. [Suspect]
     Active Substance: RANITIDINE
     Indication: DRY MOUTH
     Dosage: UNKNOWN AT THIS TIME PRESCRIPTION
     Route: 065
  3. RANITIDINE. [Suspect]
     Active Substance: RANITIDINE
     Indication: DRY MOUTH
     Dosage: UNKNOWN AT THIS TIME PRESCRIPTION
     Route: 065
  4. ZANTAC [Suspect]
     Active Substance: RANITIDINE HYDROCHLORIDE
     Indication: DRY MOUTH
     Dosage: UNKNOWN AT THIS TIME PRESCRIPTION
     Route: 065

REACTIONS (2)
  - Throat cancer [Unknown]
  - Neoplasm malignant [Unknown]
